FAERS Safety Report 7615731-X (Version None)
Quarter: 2011Q3

REPORT INFORMATION
  Report Type: 
  Country: None (occurrence: None)
  Receive Date: 20110711
  Receipt Date: 20110629
  Transmission Date: 20111222
  Serious: Yes (Hospitalization)
  Sender: FDA-Public Use
  Company Number: OSCN-NO-1106S-0159

PATIENT
  Age: 41 Year
  Sex: Female

DRUGS (16)
  1. LEVOTHYROXINE SODIUM [Concomitant]
  2. DAIVONEX OINTMENT (CALCIPOTRIOL) [Concomitant]
  3. SORBITOL (SORBITOL) [Concomitant]
  4. DIPROSALIC OINTMENT (SALICYLIC ACID) [Concomitant]
  5. NOBLIGAN (TRAMADOL HYDROCHLORIDE) [Concomitant]
  6. EPIPEN [Concomitant]
  7. BEHEPAN (CYANOCOBALAMIN) [Concomitant]
  8. IBUMETIN (IBUPROFEN) [Concomitant]
  9. HYOSCINE HBR HYT [Concomitant]
  10. FOLATE (FOLACIN) (FOLIC ACID) [Concomitant]
  11. PULMICORT [Concomitant]
  12. PRIMPERAN INJ [Concomitant]
  13. OMNISCAN [Suspect]
     Indication: CROHN'S DISEASE
     Dosage: SINGLE DOSE, INTRAVENOUS
     Route: 042
     Dates: start: 20110216, end: 20110216
  14. PAPAVERIN (PAPAVERINE HYDROCHLORIDE) [Concomitant]
  15. CALCIPOTRIOL (XAMIOL GEL) [Concomitant]
  16. BRICANYL (GTERBUTALINE SULFATE) [Concomitant]

REACTIONS (5)
  - SLEEP APNOEA SYNDROME [None]
  - FLUID RETENTION [None]
  - BACK PAIN [None]
  - OEDEMA [None]
  - DYSPNOEA [None]
